FAERS Safety Report 4803537-6 (Version None)
Quarter: 2005Q4

REPORT INFORMATION
  Report Type: 
  Country: None (occurrence: None)
  Receive Date: 20051013
  Receipt Date: 20050919
  Transmission Date: 20060501
  Serious: Yes (Death)
  Sender: FDA-Public Use
  Company Number: IMP_0908_2005

PATIENT
  Age: 17 Year

DRUGS (3)
  1. OXYCODONE [Suspect]
  2. ETHANOL [Suspect]
     Dosage: DF UNK UNK
  3. UNKNOWN DRUG [Suspect]
     Dosage: DF UNK UNK

REACTIONS (3)
  - CARDIO-RESPIRATORY ARREST [None]
  - DRUG ABUSER [None]
  - MULTIPLE DRUG OVERDOSE [None]
